FAERS Safety Report 15074987 (Version 2)
Quarter: 2023Q4

REPORT INFORMATION
  Report Type: Spontaneous
  Country: US (occurrence: US)
  Receive Date: 20180627
  Receipt Date: 20231128
  Transmission Date: 20240110
  Serious: Yes (Other)
  Sender: FDA-Public Use
  Company Number: US-SAOL THERAPEUTICS-2017SAO01702

PATIENT
  Age: 49 Year
  Sex: Male

DRUGS (1)
  1. LIORESAL [Suspect]
     Active Substance: BACLOFEN
     Dosage: 758.3 ?G, \DAY
     Route: 037

REACTIONS (3)
  - Muscle spasticity [Unknown]
  - Underdose [Unknown]
  - Device infusion issue [Unknown]

NARRATIVE: CASE EVENT DATE: 20170901
